FAERS Safety Report 18558947 (Version 2)
Quarter: 2020Q4

REPORT INFORMATION
  Report Type: Spontaneous
  Country: US (occurrence: US)
  Receive Date: 20201130
  Receipt Date: 20201201
  Transmission Date: 20210114
  Serious: Yes (Hospitalization, Other)
  Sender: FDA-Public Use
  Company Number: US-BEH-2020125529

PATIENT
  Sex: Female

DRUGS (10)
  1. PREDNISONE. [Concomitant]
     Active Substance: PREDNISONE
     Route: 065
  2. TROKENDI [Concomitant]
     Active Substance: TOPIRAMATE
     Route: 065
  3. CLINDAMYCIN HCL [Concomitant]
     Active Substance: CLINDAMYCIN HYDROCHLORIDE
     Route: 065
  4. AUGMENTIN [Concomitant]
     Active Substance: AMOXICILLIN\CLAVULANATE POTASSIUM
     Route: 065
  5. HIZENTRA [Suspect]
     Active Substance: HUMAN IMMUNOGLOBULIN G
     Indication: IMMUNODEFICIENCY COMMON VARIABLE
     Dosage: 17 GRAM, QW
     Route: 058
     Dates: start: 20151102
  6. KEFLEX [Concomitant]
     Active Substance: CEPHALEXIN
     Route: 065
  7. ACETAZOLAMID [Concomitant]
     Active Substance: ACETAZOLAMIDE
     Dosage: 500 MILLIGRAM
  8. CEFDINIR. [Concomitant]
     Active Substance: CEFDINIR
     Route: 065
  9. VASOTEC [ENALAPRILAT] [Concomitant]
     Active Substance: ENALAPRILAT
     Dosage: 5 MILLIGRAM
     Route: 065
  10. PAXIL [PIROXICAM] [Concomitant]
     Active Substance: PIROXICAM
     Dosage: 20 MILLIGRAM
     Route: 065

REACTIONS (4)
  - No adverse event [Unknown]
  - Meningitis aseptic [Recovered/Resolved]
  - Therapy interrupted [Unknown]
  - Asthenia [Recovered/Resolved]
